FAERS Safety Report 6347285-2 (Version None)
Quarter: 2009Q3

REPORT INFORMATION
  Report Type: 
  Country: None (occurrence: None)
  Receive Date: 20090910
  Receipt Date: 20090828
  Transmission Date: 20100115
  Serious: Yes (Other)
  Sender: FDA-Public Use
  Company Number: US-PFIZER INC-2009247611

PATIENT
  Sex: Female
  Weight: 63.946 kg

DRUGS (7)
  1. CHANTIX [Suspect]
     Indication: SMOKING CESSATION THERAPY
     Dosage: 0.5 MG, 1X/DAY
     Route: 048
     Dates: start: 20090701, end: 20090801
  2. SEROQUEL [Suspect]
     Indication: SLEEP DISORDER
     Dosage: 50 MG, 1X/DAY
     Route: 048
     Dates: start: 20090101
  3. CYPROHEPTADINE [Suspect]
     Indication: SLEEP DISORDER
  4. EFFEXOR [Concomitant]
     Indication: SCHIZOPHRENIA
     Dosage: 75 MG, 1X/DAY
     Route: 048
  5. ABILIFY [Concomitant]
     Indication: SCHIZOPHRENIA
     Dosage: 15 MG, 1X/DAY
     Route: 048
  6. DILANTIN [Concomitant]
     Indication: GRAND MAL CONVULSION
     Dosage: 400 MG, 1X/DAY
     Route: 048
  7. BENADRYL [Concomitant]
     Indication: HYPERSENSITIVITY
     Route: 048

REACTIONS (6)
  - DRUG INEFFECTIVE [None]
  - MALAISE [None]
  - NAUSEA [None]
  - SCHIZOPHRENIA [None]
  - SOMNOLENCE [None]
  - VOMITING [None]
